FAERS Safety Report 8067776-6 (Version None)
Quarter: 2012Q1

REPORT INFORMATION
  Report Type: 
  Country: None (occurrence: None)
  Receive Date: 20120124
  Receipt Date: 20120116
  Transmission Date: 20120608
  Serious: Yes (Other)
  Sender: FDA-Public Use
  Company Number: US-ASTRAZENECA-2012SE03172

PATIENT
  Age: 61 Year
  Sex: Female

DRUGS (4)
  1. CARDIZEM CD [Concomitant]
  2. LISINOPRIL [Suspect]
     Route: 048
  3. PRADAXA [Concomitant]
  4. TOPROL-XL [Suspect]
     Route: 048
     Dates: start: 20020101

REACTIONS (4)
  - TRANSIENT ISCHAEMIC ATTACK [None]
  - ATRIAL FIBRILLATION [None]
  - DIABETES MELLITUS [None]
  - CEREBROVASCULAR ACCIDENT [None]
